FAERS Safety Report 9728402 (Version 1)
Quarter: 2013Q4

REPORT INFORMATION
  Report Type: Not Available
  Country: GB (occurrence: GB)
  Receive Date: 20131204
  Receipt Date: 20131204
  Transmission Date: 20140711
  Serious: Yes (Other)
  Sender: FDA-Public Use
  Company Number: GB-ASTELLAS-2013EU010617

PATIENT
  Age: 61 Year
  Sex: Male
  Weight: 96 kg

DRUGS (7)
  1. SOLIFENACIN [Suspect]
     Dosage: UNK
     Route: 065
     Dates: start: 20131113
  2. ASPIRIN [Concomitant]
     Dosage: UNK
     Route: 065
     Dates: start: 20130718
  3. BISOPROLOL [Concomitant]
     Dosage: UNK
     Route: 065
     Dates: start: 20131031
  4. CITALOPRAM [Concomitant]
     Dosage: UNK
     Route: 065
     Dates: start: 20130718
  5. LISINOPRIL [Concomitant]
     Dosage: UNK
     Route: 065
     Dates: start: 20130718
  6. OXYBUTYNIN [Concomitant]
     Dosage: UNK
     Route: 065
     Dates: start: 20130809
  7. SIMVASTATIN [Concomitant]
     Dosage: UNK
     Route: 065
     Dates: start: 20130718

REACTIONS (1)
  - Dementia [Recovering/Resolving]
